FAERS Safety Report 4878157-8 (Version None)
Quarter: 2005Q4

REPORT INFORMATION
  Report Type: 
  Country: None (occurrence: None)
  Receive Date: 20051212
  Receipt Date: 20051109
  Transmission Date: 20060501
  Serious: Yes (Other)
  Sender: FDA-Public Use
  Company Number: 2005-02343

PATIENT
  Age: 45 Year
  Sex: Male
  Weight: 94.8 kg

DRUGS (4)
  1. VELCADE [Suspect]
     Indication: MULTIPLE MYELOMA
     Dosage: 1.30 MG/M2, UNK, IV BOLUS
     Route: 040
     Dates: start: 20051027, end: 20051103
  2. DEXAMETHASONE TAB [Concomitant]
  3. BENADRYL (SODIUM CITRATE, AMMONIUM CHLORIDE, MENTHOL, DIPHENHYDRAMINE [Concomitant]
  4. ANZEMET [Concomitant]

REACTIONS (4)
  - ATRIAL FIBRILLATION [None]
  - FEELING ABNORMAL [None]
  - GALLOP RHYTHM PRESENT [None]
  - HYPERHIDROSIS [None]
